FAERS Safety Report 4799782-9 (Version None)
Quarter: 2005Q4

REPORT INFORMATION
  Report Type: 
  Country: None (occurrence: None)
  Receive Date: 20051012
  Receipt Date: 20051012
  Transmission Date: 20060501
  Serious: Yes (Hospitalization)
  Sender: FDA-Public Use
  Company Number: None

PATIENT
  Sex: Male
  Weight: 65.7716 kg

DRUGS (2)
  1. AMOXIL [Suspect]
     Dosage: 250MG PO  (THERAPY DATES: PRIOR TO ADMISSION)
     Route: 048
  2. MOTRIN [Concomitant]

REACTIONS (2)
  - PYREXIA [None]
  - RASH [None]
